FAERS Safety Report 4899481-9 (Version None)
Quarter: 2006Q1

REPORT INFORMATION
  Report Type: 
  Country: None (occurrence: None)
  Receive Date: 20060118
  Receipt Date: 20051017
  Transmission Date: 20060701
  Serious: Yes (Other)
  Sender: FDA-Public Use
  Company Number: 2005002038

PATIENT
  Age: 59 Year
  Sex: Female

DRUGS (8)
  1. TARCEVA [Suspect]
     Indication: PANCREATIC CARCINOMA
     Dosage: 150 MG (QD), ORAL
     Route: 048
     Dates: start: 20050712, end: 20051004
  2. GEMCITABINE [Concomitant]
  3. NIFEDIPINE [Concomitant]
  4. PEPCID [Concomitant]
  5. COMPAZINE [Concomitant]
  6. PROPRANOLOL [Concomitant]
  7. HYDROCHLOROTHIAZIDE [Concomitant]
  8. TOLAZAMINE (TOLAZAMIDE) [Concomitant]

REACTIONS (1)
  - INTERSTITIAL LUNG DISEASE [None]
